FAERS Safety Report 17375000 (Version 1)
Quarter: 2020Q1

REPORT INFORMATION
  Report Type: Spontaneous
  Country: US (occurrence: US)
  Receive Date: 20200204
  Receipt Date: 20200204
  Transmission Date: 20200409
  Serious: Yes (Hospitalization, Disabling)
  Sender: FDA-Public Use
  Company Number: None

PATIENT
  Age: 43 Year
  Sex: Female
  Weight: 63 kg

DRUGS (1)
  1. LEVAQUIN [Suspect]
     Active Substance: LEVOFLOXACIN
     Indication: EAR INFECTION
     Dates: start: 20150408, end: 20150421

REACTIONS (5)
  - Disability [None]
  - Toxicity to various agents [None]
  - Tendon rupture [None]
  - Tendon pain [None]
  - Muscular weakness [None]

NARRATIVE: CASE EVENT DATE: 20150611
